FAERS Safety Report 26011562 (Version 2)
Quarter: 2025Q4

REPORT INFORMATION
  Report Type: Spontaneous
  Country: US (occurrence: US)
  Receive Date: 20251107
  Receipt Date: 20251231
  Transmission Date: 20260118
  Serious: Yes (Life-Threatening, Hospitalization)
  Sender: RADIUS PHARM
  Company Number: US-RADIUS HEALTH INC.-US-RADIUS-25053750

PATIENT
  Sex: Female

DRUGS (5)
  1. TYMLOS [Suspect]
     Active Substance: ABALOPARATIDE
     Indication: Senile osteoporosis
     Dosage: 80 MICROGRAM, QD
     Route: 058
     Dates: start: 20250807, end: 20250905
  2. TYMLOS [Suspect]
     Active Substance: ABALOPARATIDE
     Indication: Spinal fracture
  3. LEVOCETIRIZINE DIHYDROCHLORIDE [Concomitant]
     Active Substance: LEVOCETIRIZINE DIHYDROCHLORIDE
     Indication: Product used for unknown indication
  4. OMEPRAZOLE [Concomitant]
     Active Substance: OMEPRAZOLE
     Indication: Gastrooesophageal reflux disease
  5. CYANOCOBALAMIN [Concomitant]
     Active Substance: CYANOCOBALAMIN
     Indication: Product used for unknown indication

REACTIONS (16)
  - Illness [Recovered/Resolved]
  - Blood calcium increased [Recovered/Resolved]
  - Gait disturbance [Recovered/Resolved]
  - Speech disorder [Recovered/Resolved]
  - Memory impairment [Recovered/Resolved]
  - Brain fog [Recovered/Resolved]
  - Blood sodium decreased [Recovered/Resolved]
  - Blood electrolytes decreased [Recovered/Resolved]
  - Electrolyte imbalance [Unknown]
  - Fall [Unknown]
  - Somnolence [Unknown]
  - Dysphagia [Unknown]
  - Abdominal discomfort [Unknown]
  - Pruritus [Unknown]
  - Malaise [Unknown]
  - Nausea [Unknown]

NARRATIVE: CASE EVENT DATE: 20250101
